FAERS Safety Report 25365962 (Version 1)
Quarter: 2025Q2

REPORT INFORMATION
  Report Type: Report from Study
  Country: CA (occurrence: CA)
  Receive Date: 20250528
  Receipt Date: 20250528
  Transmission Date: 20250717
  Serious: Yes (Other)
  Sender: TAKEDA
  Company Number: CA-TAKEDA-2021TUS032730

PATIENT
  Sex: Female

DRUGS (8)
  1. VEDOLIZUMAB [Suspect]
     Active Substance: VEDOLIZUMAB
     Indication: Crohn^s disease
  2. VEDOLIZUMAB [Suspect]
     Active Substance: VEDOLIZUMAB
  3. VEDOLIZUMAB [Suspect]
     Active Substance: VEDOLIZUMAB
  4. BUTYLSCOPOLAMINE BROMIDE [Concomitant]
     Active Substance: BUTYLSCOPOLAMINE BROMIDE
  5. FOLIC ACID [Concomitant]
     Active Substance: FOLIC ACID
  6. CLONAZEPAM [Concomitant]
     Active Substance: CLONAZEPAM
  7. IMURAN [Concomitant]
     Active Substance: AZATHIOPRINE
  8. METHOTREXATE [Concomitant]
     Active Substance: METHOTREXATE
     Dosage: UNK UNK, 1/WEEK

REACTIONS (6)
  - Crohn^s disease [Unknown]
  - Hypoacusis [Unknown]
  - Actinic keratosis [Unknown]
  - Psoriasis [Not Recovered/Not Resolved]
  - Illness [Unknown]
  - Multiple allergies [Unknown]
